FAERS Safety Report 6483869-9 (Version None)
Quarter: 2009Q4

REPORT INFORMATION
  Report Type: 
  Country: None (occurrence: None)
  Receive Date: 20091209
  Receipt Date: 20091128
  Transmission Date: 20100525
  Serious: Yes (Hospitalization, Disabling)
  Sender: FDA-Public Use
  Company Number: FI-JNJFOC-20091104037

PATIENT
  Sex: Female
  Weight: 76 kg

DRUGS (40)
  1. GOLIMUMAB [Suspect]
     Route: 058
  2. GOLIMUMAB [Suspect]
     Route: 058
  3. GOLIMUMAB [Suspect]
     Route: 058
  4. GOLIMUMAB [Suspect]
     Route: 058
  5. GOLIMUMAB [Suspect]
     Route: 058
  6. GOLIMUMAB [Suspect]
     Route: 058
  7. GOLIMUMAB [Suspect]
     Route: 058
  8. GOLIMUMAB [Suspect]
     Route: 058
  9. GOLIMUMAB [Suspect]
     Route: 058
  10. GOLIMUMAB [Suspect]
     Route: 058
  11. GOLIMUMAB [Suspect]
     Route: 058
  12. GOLIMUMAB [Suspect]
     Route: 058
  13. GOLIMUMAB [Suspect]
     Route: 058
  14. GOLIMUMAB [Suspect]
     Route: 058
  15. GOLIMUMAB [Suspect]
     Route: 058
  16. GOLIMUMAB [Suspect]
     Route: 058
  17. GOLIMUMAB [Suspect]
     Route: 058
  18. GOLIMUMAB [Suspect]
     Route: 058
  19. GOLIMUMAB [Suspect]
     Route: 058
  20. GOLIMUMAB [Suspect]
     Route: 058
  21. GOLIMUMAB [Suspect]
     Route: 058
  22. GOLIMUMAB [Suspect]
     Route: 058
  23. GOLIMUMAB [Suspect]
     Route: 058
  24. GOLIMUMAB [Suspect]
     Indication: RHEUMATOID ARTHRITIS
     Route: 058
  25. PLACEBO [Suspect]
     Route: 058
  26. PLACEBO [Suspect]
     Route: 058
  27. PLACEBO [Suspect]
     Route: 058
  28. PLACEBO [Suspect]
     Route: 058
  29. PLACEBO [Suspect]
     Route: 058
  30. PLACEBO [Suspect]
     Indication: RHEUMATOID ARTHRITIS
     Route: 058
  31. THYROXIN [Concomitant]
     Route: 048
  32. KALCIPOS-D [Concomitant]
     Route: 048
  33. BISOPROLOL [Concomitant]
     Route: 048
  34. OMEPRAZOLE [Concomitant]
     Route: 048
  35. TRAMADIN [Concomitant]
     Route: 048
  36. SIMVASTATIN [Concomitant]
     Route: 048
  37. OXAMIN [Concomitant]
     Route: 048
  38. ESTROGEL [Concomitant]
     Route: 061
  39. LEVEMIR [Concomitant]
     Route: 058
  40. PREDNISOLONE [Concomitant]
     Route: 048

REACTIONS (3)
  - FEMALE GENITAL TRACT FISTULA [None]
  - GENITAL INFECTION FEMALE [None]
  - WOUND DEHISCENCE [None]
